FAERS Safety Report 24684083 (Version 1)
Quarter: 2024Q4

REPORT INFORMATION
  Report Type: Spontaneous
  Country: PT (occurrence: PT)
  Receive Date: 20241202
  Receipt Date: 20241202
  Transmission Date: 20250115
  Serious: Yes (Other)
  Sender: CELLTRION
  Company Number: PT-ROCHE-3568842

PATIENT

DRUGS (9)
  1. RITUXIMAB [Suspect]
     Active Substance: RITUXIMAB
     Indication: Immunoglobulin G4 related disease
     Dosage: TWO CYCLES
  2. RITUXIMAB [Suspect]
     Active Substance: RITUXIMAB
     Dosage: TWO CYCLES
  3. RITUXIMAB [Suspect]
     Active Substance: RITUXIMAB
     Dosage: RITUXIMAB EVERY 30WEEKS
  4. RITUXIMAB [Suspect]
     Active Substance: RITUXIMAB
     Dosage: CURRENTLY RITUXIMAB EVERY 6MONTHS
  5. RITUXIMAB [Suspect]
     Active Substance: RITUXIMAB
     Dosage: TWO CYCLES, EVERY 30 WEEKS
     Route: 065
  6. PREDNISOLONE [Suspect]
     Active Substance: PREDNISOLONE
     Indication: Immunoglobulin G4 related disease
     Dosage: 40MG, WITH SUBSEQUENT REDUCTION TO 30MG AND THEN 25MG, OVER A 3-MONTH PERIOD
     Route: 048
     Dates: start: 201805
  7. PREDNISOLONE [Suspect]
     Active Substance: PREDNISOLONE
     Dosage: MAINTENANCE TREATMENT
     Route: 048
  8. PREDNISOLONE [Suspect]
     Active Substance: PREDNISOLONE
     Dosage: 5 MG
     Route: 048
  9. PNEUMOVAX 23 [Concomitant]
     Active Substance: PNEUMOCOCCAL VACCINE, POLYVALENT 23
     Indication: Immunisation

REACTIONS (4)
  - Chronic gastritis [Unknown]
  - Helicobacter infection [Unknown]
  - Epstein-Barr virus infection [Unknown]
  - Drug effective for unapproved indication [Unknown]
